FAERS Safety Report 8477064-1 (Version None)
Quarter: 2012Q2

REPORT INFORMATION
  Report Type: 
  Country: None (occurrence: None)
  Receive Date: 20120629
  Receipt Date: 20120625
  Transmission Date: 20120825
  Serious: No
  Sender: FDA-Public Use
  Company Number: US-PFIZER INC-2012153479

PATIENT
  Age: 47 Year
  Sex: Female

DRUGS (2)
  1. EFFEXOR [Suspect]
     Indication: MENOPAUSAL SYMPTOMS
     Dosage: 37.5 MG, UNK
  2. EFFEXOR XR [Suspect]

REACTIONS (1)
  - DIZZINESS [None]
